FAERS Safety Report 8971326 (Version 2)
Quarter: 2012Q4

REPORT INFORMATION
  Report Type: 
  Country: US (occurrence: US)
  Receive Date: 20121218
  Receipt Date: 20121226
  Transmission Date: 20130627
  Serious: No
  Sender: FDA-Public Use
  Company Number: US-VERTEX PHARMACEUTICALS INC.-2012-025464

PATIENT
  Age: 59 None
  Sex: Female
  Weight: 64 kg

DRUGS (4)
  1. VX-950 (TELAPREVIR) [Suspect]
     Indication: HEPATITIS C
     Dosage: 750 mg, tid
     Route: 048
     Dates: start: 2012
  2. PEGASYS [Suspect]
     Indication: HEPATITIS C
     Dosage: 180 ?g, qw
     Route: 058
     Dates: start: 2012
  3. RIBASPHERE [Suspect]
     Indication: HEPATITIS C
     Dosage: 400 mg, bid
     Dates: start: 2012
  4. RIBASPHERE [Suspect]
     Dosage: 200mg AM, 400mg PM

REACTIONS (13)
  - Dyspnoea [Unknown]
  - Breast pain [Unknown]
  - Oral pain [Unknown]
  - Glossodynia [Unknown]
  - Nasal ulcer [Unknown]
  - Injection site erythema [Unknown]
  - Fatigue [Unknown]
  - Oral candidiasis [Unknown]
  - Haemoglobin decreased [Unknown]
  - Diarrhoea [Unknown]
  - Anorectal discomfort [Unknown]
  - Nausea [Unknown]
  - Vomiting [Unknown]
